FAERS Safety Report 25952281 (Version 1)
Quarter: 2025Q4

REPORT INFORMATION
  Report Type: Spontaneous
  Country: IN (occurrence: IN)
  Receive Date: 20251023
  Receipt Date: 20251023
  Transmission Date: 20260117
  Serious: Yes (Hospitalization)
  Sender: MYLAN
  Company Number: IN-MYLANLABS-2025M1088786

PATIENT
  Age: 65 Year
  Sex: Male

DRUGS (8)
  1. PHENYTOIN [Suspect]
     Active Substance: PHENYTOIN
     Indication: Seizure
     Dosage: 300 MILLIGRAM, QD
  2. PHENYTOIN [Suspect]
     Active Substance: PHENYTOIN
     Dosage: 300 MILLIGRAM, QD
     Route: 065
  3. PHENYTOIN [Suspect]
     Active Substance: PHENYTOIN
     Dosage: 300 MILLIGRAM, QD
     Route: 065
  4. PHENYTOIN [Suspect]
     Active Substance: PHENYTOIN
     Dosage: 300 MILLIGRAM, QD
  5. AMLODIPINE [Concomitant]
     Active Substance: AMLODIPINE BESYLATE
     Indication: Hypertension
     Dosage: 5 MILLIGRAM, QD
  6. AMLODIPINE [Concomitant]
     Active Substance: AMLODIPINE BESYLATE
     Dosage: 5 MILLIGRAM, QD
     Route: 065
  7. AMLODIPINE [Concomitant]
     Active Substance: AMLODIPINE BESYLATE
     Dosage: 5 MILLIGRAM, QD
     Route: 065
  8. AMLODIPINE [Concomitant]
     Active Substance: AMLODIPINE BESYLATE
     Dosage: 5 MILLIGRAM, QD

REACTIONS (2)
  - Toxicity to various agents [Recovering/Resolving]
  - Intestinal pseudo-obstruction [Recovering/Resolving]
